FAERS Safety Report 15098596 (Version 1)
Quarter: 2020Q3

REPORT INFORMATION
  Report Type: Spontaneous
  Country: IT (occurrence: IT)
  Receive Date: 20180702
  Receipt Date: 20180702
  Transmission Date: 20201104
  Serious: Yes (Death)
  Sender: FDA-Public Use
  Company Number: IT-TEVA-2018-IT-916879

PATIENT
  Age: 92 Year
  Sex: Female

DRUGS (1)
  1. AMIKACIN. [Suspect]
     Active Substance: AMIKACIN
     Indication: URINARY TRACT INFECTION
     Route: 030
     Dates: start: 20171115, end: 20171122

REACTIONS (1)
  - Stevens-Johnson syndrome [Fatal]

NARRATIVE: CASE EVENT DATE: 20171122
